FAERS Safety Report 6905200-4 (Version None)
Quarter: 2010Q3

REPORT INFORMATION
  Report Type: 
  Country: None (occurrence: None)
  Receive Date: 20100804
  Receipt Date: 20100723
  Transmission Date: 20110219
  Serious: Yes (Death)
  Sender: FDA-Public Use
  Company Number: NSADSS2002031257

PATIENT
  Sex: Female
  Weight: 37 kg

DRUGS (9)
  1. REMICADE [Suspect]
     Indication: RHEUMATOID ARTHRITIS
     Route: 041
     Dates: start: 20020223
  2. REMICADE [Suspect]
     Route: 041
     Dates: start: 20020223
  3. REMICADE [Suspect]
     Route: 041
     Dates: start: 20020223
  4. METHOTREXATE [Concomitant]
     Route: 048
     Dates: start: 19991007
  5. ACETAMINOPHEN [Concomitant]
     Route: 048
  6. PREDNISOLONE [Concomitant]
     Route: 048
  7. DICLOFENAC [Concomitant]
     Route: 048
     Dates: start: 20000406
  8. MISOPROSTOL [Concomitant]
     Dates: start: 20000406
  9. CALCICHEW [Concomitant]

REACTIONS (7)
  - DYSPNOEA [None]
  - HYPOTENSION [None]
  - LARGE INTESTINE PERFORATION [None]
  - METABOLIC ACIDOSIS [None]
  - NECROSIS ISCHAEMIC [None]
  - PANCREATIC CARCINOMA [None]
  - POLYP [None]
